FAERS Safety Report 13825466 (Version 3)
Quarter: 2017Q3

REPORT INFORMATION
  Report Type: Spontaneous
  Country: RO (occurrence: RO)
  Receive Date: 20170802
  Receipt Date: 20170922
  Transmission Date: 20171127
  Serious: Yes (Hospitalization, Other)
  Sender: FDA-Public Use
  Company Number: RO-ELI_LILLY_AND_COMPANY-RO201707010862

PATIENT
  Age: 32 Year
  Sex: Male

DRUGS (1)
  1. ZYPADHERA [Suspect]
     Active Substance: OLANZAPINE PAMOATE
     Indication: SCHIZOPHRENIA
     Dosage: 405 MG, UNKNOWN
     Route: 030
     Dates: start: 2003

REACTIONS (9)
  - Vertigo [Recovered/Resolved]
  - Impatience [Recovered/Resolved]
  - Sedation [Recovered/Resolved]
  - Confusional state [Recovered/Resolved]
  - Asthenia [Recovered/Resolved]
  - Ataxia [Recovered/Resolved]
  - Post-injection delirium sedation syndrome [Recovered/Resolved]
  - Agitation [Recovered/Resolved]
  - Dysarthria [Recovered/Resolved]

NARRATIVE: CASE EVENT DATE: 20170724
